FAERS Safety Report 13484572 (Version 1)
Quarter: 2017Q2

REPORT INFORMATION
  Report Type: Spontaneous
  Country: US (occurrence: US)
  Receive Date: 20170426
  Receipt Date: 20170426
  Transmission Date: 20170830
  Serious: No
  Sender: FDA-Public Use
  Company Number: US-PFIZER INC-2017179700

PATIENT
  Age: 45 Year
  Sex: Male

DRUGS (1)
  1. NEURONTIN [Suspect]
     Active Substance: GABAPENTIN
     Indication: MOOD SWINGS
     Dosage: 400 MG, 1X/DAY AT BEDTIME

REACTIONS (3)
  - Dysuria [Unknown]
  - Product use in unapproved indication [Unknown]
  - Pollakiuria [Unknown]
